FAERS Safety Report 15324850 (Version 1)
Quarter: 2018Q3

REPORT INFORMATION
  Report Type: Spontaneous
  Country: US (occurrence: US)
  Receive Date: 20180822
  Receipt Date: 20180822
  Transmission Date: 20181010
  Serious: No
  Sender: FDA-Public Use
  Company Number: None

PATIENT
  Age: 46 Year
  Sex: Female
  Weight: 67.5 kg

DRUGS (1)
  1. VIVITROL [Suspect]
     Active Substance: NALTREXONE
     Indication: ALCOHOL ABUSE
     Route: 030
     Dates: start: 20180804

REACTIONS (3)
  - Injection site pain [None]
  - Injection site induration [None]
  - Injection site mass [None]

NARRATIVE: CASE EVENT DATE: 20180822
